FAERS Safety Report 15680093 (Version 5)
Quarter: 2019Q2

REPORT INFORMATION
  Report Type: Report from Study
  Country: CA (occurrence: CA)
  Receive Date: 20181203
  Receipt Date: 20190607
  Transmission Date: 20190711
  Serious: Yes (Hospitalization, Other)
  Sender: FDA-Public Use
  Company Number: CA-ROCHE-2214382

PATIENT
  Age: 82 Year
  Sex: Male

DRUGS (17)
  1. DIPHENHYDRAMINE. [Concomitant]
     Active Substance: DIPHENHYDRAMINE
     Indication: PREMEDICATION
     Route: 048
     Dates: start: 20181109
  2. ACETAMINOPHEN. [Concomitant]
     Active Substance: ACETAMINOPHEN
     Indication: PREMEDICATION
     Route: 048
     Dates: start: 20181109
  3. BRINZOLAMIDE [Concomitant]
     Active Substance: BRINZOLAMIDE
  4. DOXYCYCLINE. [Concomitant]
     Active Substance: DOXYCYCLINE
  5. LOTEPREDNOL [Concomitant]
     Active Substance: LOTEPREDNOL
  6. COSOPT [Concomitant]
     Active Substance: DORZOLAMIDE HYDROCHLORIDE\TIMOLOL MALEATE
  7. MIRTAZAPINE. [Concomitant]
     Active Substance: MIRTAZAPINE
  8. SPIRONOLACTONE. [Concomitant]
     Active Substance: SPIRONOLACTONE
  9. RITUXAN [Suspect]
     Active Substance: RITUXIMAB
     Indication: OCULAR PEMPHIGOID
     Dosage: ON 09/NOV/2018 THERAPY STARTED
     Route: 042
     Dates: start: 20181109
  10. TIMOLOL. [Concomitant]
     Active Substance: TIMOLOL
  11. CELLCEPT [Suspect]
     Active Substance: MYCOPHENOLATE MOFETIL\MYCOPHENOLATE MOFETIL HYDROCHLORIDE
     Indication: OCULAR PEMPHIGOID
     Route: 065
  12. METHYLPREDNISOLONE. [Concomitant]
     Active Substance: METHYLPREDNISOLONE
     Indication: PREMEDICATION
     Route: 042
     Dates: start: 20181109
  13. AMLODIPINE [Concomitant]
     Active Substance: AMLODIPINE BESYLATE
  14. BRIMONIDINE [Concomitant]
     Active Substance: BRIMONIDINE TARTRATE
  15. DORZOLAMIDE [Concomitant]
     Active Substance: DORZOLAMIDE
  16. METFORMIN [Concomitant]
     Active Substance: METFORMIN HYDROCHLORIDE
  17. MOXIFLOXACIN. [Concomitant]
     Active Substance: MOXIFLOXACIN

REACTIONS (13)
  - Oxygen saturation decreased [Unknown]
  - Ear pruritus [Recovering/Resolving]
  - Joint swelling [Not Recovered/Not Resolved]
  - Pruritus [Recovering/Resolving]
  - Infusion related reaction [Unknown]
  - Somnolence [Not Recovered/Not Resolved]
  - Hypertension [Unknown]
  - Erythema [Unknown]
  - Micturition disorder [Not Recovered/Not Resolved]
  - Blood pressure diastolic abnormal [Unknown]
  - Blood pressure systolic abnormal [Unknown]
  - Peripheral swelling [Not Recovered/Not Resolved]
  - Blood pressure systolic increased [Unknown]

NARRATIVE: CASE EVENT DATE: 20181109
